FAERS Safety Report 4716423-7 (Version None)
Quarter: 2005Q3

REPORT INFORMATION
  Report Type: 
  Country: None (occurrence: None)
  Receive Date: 20050719
  Receipt Date: 20050707
  Transmission Date: 20060218
  Serious: Yes (Other)
  Sender: FDA-Public Use
  Company Number: US-JNJFOC-20050701414

PATIENT
  Sex: Male
  Weight: 90.72 kg

DRUGS (5)
  1. REMICADE [Suspect]
     Indication: CROHN'S DISEASE
     Route: 042
  2. REMICADE [Suspect]
     Route: 042
  3. IMURAN [Concomitant]
  4. EFFEXOR XR [Concomitant]
  5. PROZAC [Concomitant]

REACTIONS (5)
  - CORONARY ARTERY DISEASE [None]
  - DYSPNOEA [None]
  - MONONEUROPATHY MULTIPLEX [None]
  - PLEURITIC PAIN [None]
  - VASCULITIS [None]
